FAERS Safety Report 7650954-5 (Version None)
Quarter: 2011Q3

REPORT INFORMATION
  Report Type: 
  Country: None (occurrence: None)
  Receive Date: 20110802
  Receipt Date: 20110719
  Transmission Date: 20111222
  Serious: Yes (Hospitalization, Other)
  Sender: FDA-Public Use
  Company Number: US-ELI_LILLY_AND_COMPANY-US201007005848

PATIENT
  Sex: Female

DRUGS (6)
  1. VITAMIN D [Concomitant]
  2. FORTEO [Suspect]
     Indication: OSTEOPOROSIS
     Dosage: 20 UG, QD
     Dates: start: 20100618
  3. FORTEO [Suspect]
     Dosage: 20 UG, QD
     Route: 065
  4. MULTI-VITAMIN [Concomitant]
  5. FORTEO [Suspect]
     Dosage: 20 UG, QD
  6. FORTEO [Suspect]
     Dosage: 20 UG, QD

REACTIONS (6)
  - MUSCLE SPASMS [None]
  - BLOOD CALCIUM INCREASED [None]
  - INJECTION SITE HAEMATOMA [None]
  - FALL [None]
  - TIBIA FRACTURE [None]
  - HAND FRACTURE [None]
